FAERS Safety Report 8218199-8 (Version None)
Quarter: 2012Q1

REPORT INFORMATION
  Report Type: 
  Country: None (occurrence: None)
  Receive Date: 20120319
  Receipt Date: 20120314
  Transmission Date: 20120608
  Serious: Yes (Death)
  Sender: FDA-Public Use
  Company Number: JP-SANOFI-AVENTIS-2011SA085598

PATIENT
  Age: 93 Year
  Sex: Male
  Weight: 70 kg

DRUGS (14)
  1. SIGMART [Concomitant]
     Dosage: DOSE: 12 GX8A
     Dates: start: 20090714, end: 20090717
  2. HEPARIN [Suspect]
     Dosage: DOSE:15 UNIT(S)
     Route: 042
     Dates: start: 20090716, end: 20090716
  3. BOSMIN [Concomitant]
     Dosage: DOSE: 3A
     Dates: start: 20090717, end: 20090717
  4. ATENOLOL AND CHLORTHALIDONE [Suspect]
     Indication: AORTIC DISSECTION
     Dosage: LOADING DOSE
     Route: 065
     Dates: start: 20090714, end: 20090714
  5. ATENOLOL AND CHLORTHALIDONE [Suspect]
     Route: 065
     Dates: start: 20090715, end: 20090716
  6. ATENOLOL AND CHLORTHALIDONE [Suspect]
     Dosage: LOADING DOSE
     Route: 065
     Dates: start: 20090714, end: 20090714
  7. ATENOLOL AND CHLORTHALIDONE [Suspect]
     Route: 065
     Dates: start: 20090715, end: 20090716
  8. ALL OTHER THERAPEUTIC PRODUCTS [Concomitant]
     Route: 048
     Dates: start: 20090715, end: 20090715
  9. HEPARIN [Suspect]
     Dosage: DOSE:13 UNIT(S)
     Route: 042
     Dates: start: 20090717, end: 20090717
  10. ASPIRIN [Suspect]
     Route: 048
     Dates: end: 20090717
  11. HEPARIN [Suspect]
     Dosage: DOSE:15 UNIT(S)
     Route: 042
     Dates: start: 20090714, end: 20090714
  12. HEPARIN [Suspect]
     Dosage: DOSE:13 UNIT(S)
     Route: 042
     Dates: start: 20090715, end: 20090715
  13. RABEPRAZOLE SODIUM [Concomitant]
     Route: 048
     Dates: start: 20090714, end: 20090717
  14. LASIX [Concomitant]
     Dates: start: 20090717, end: 20090717

REACTIONS (1)
  - AORTIC DISSECTION [None]
